FAERS Safety Report 18651367 (Version 3)
Quarter: 2021Q4

REPORT INFORMATION
  Report Type: Report from Study
  Country: US (occurrence: US)
  Receive Date: 20201222
  Receipt Date: 20211026
  Transmission Date: 20220303
  Serious: No
  Sender: FDA-Public Use
  Company Number: NVSC2020US331753

PATIENT
  Sex: Female

DRUGS (1)
  1. ENTRESTO [Suspect]
     Active Substance: SACUBITRIL\VALSARTAN
     Indication: Product used for unknown indication
     Dosage: 100 MG, BID (49.51MG)
     Route: 048

REACTIONS (10)
  - Illness [Unknown]
  - Ageusia [Unknown]
  - Anosmia [Unknown]
  - Palpitations [Unknown]
  - Stress [Unknown]
  - Initial insomnia [Unknown]
  - Nasopharyngitis [Unknown]
  - Nausea [Unknown]
  - Fatigue [Unknown]
  - Product dose omission issue [Unknown]
